FAERS Safety Report 8025938-8 (Version None)
Quarter: 2012Q1

REPORT INFORMATION
  Report Type: 
  Country: None (occurrence: None)
  Receive Date: 20120105
  Receipt Date: 20110923
  Transmission Date: 20120608
  Serious: No
  Sender: FDA-Public Use
  Company Number: US-ABBOTT-11P-163-0857821-00

PATIENT
  Age: 83 Year
  Sex: Female
  Weight: 87.622 kg

DRUGS (6)
  1. UNKNOWN MEDICATION [Concomitant]
     Indication: BLOOD PRESSURE ABNORMAL
  2. METFORMIN HCL [Concomitant]
     Indication: DIABETES MELLITUS
     Dosage: 2000 MG DAILY DOSE
  3. UNKNOWN MEDICATION [Concomitant]
     Indication: BLOOD CHOLESTEROL ABNORMAL
  4. SYNTHROID [Suspect]
     Indication: HYPOTHYROIDISM
     Dates: start: 20110601
  5. UNKNOWN MEDICATION [Concomitant]
     Indication: CARDIAC DISORDER
  6. UNKNOWN MEDICATION [Concomitant]
     Indication: HYPOTHYROIDISM

REACTIONS (1)
  - BLOOD GLUCOSE INCREASED [None]
